FAERS Safety Report 24577228 (Version 1)
Quarter: 2024Q4

REPORT INFORMATION
  Report Type: Spontaneous
  Country: HR (occurrence: HR)
  Receive Date: 20241104
  Receipt Date: 20241104
  Transmission Date: 20250114
  Serious: Yes (Other)
  Sender: NOVARTIS
  Company Number: HR-002147023-NVSC2024HR211483

PATIENT
  Age: 77 Year
  Sex: Female

DRUGS (7)
  1. RIBOCICLIB [Suspect]
     Active Substance: RIBOCICLIB
     Indication: Invasive ductal breast carcinoma
     Dosage: 600 MG, QD (DAILY)
     Route: 065
     Dates: start: 20190424, end: 202005
  2. RIBOCICLIB [Suspect]
     Active Substance: RIBOCICLIB
     Dosage: UNK
     Route: 065
     Dates: start: 2020
  3. INDAPAMIDE [Concomitant]
     Active Substance: INDAPAMIDE
     Indication: Hypertension
     Dosage: 1.5 MG, QD
     Route: 065
     Dates: start: 2014, end: 202102
  4. LETROZOLE [Concomitant]
     Active Substance: LETROZOLE
     Indication: Invasive ductal breast carcinoma
     Dosage: 2.5 MG, QD
     Route: 065
     Dates: start: 20190424
  5. PRAVASTATIN SODIUM [Concomitant]
     Active Substance: PRAVASTATIN SODIUM
     Indication: Product used for unknown indication
     Dosage: 90 MG, QMO (ONCE A MONTH)
     Route: 065
     Dates: start: 2019, end: 202005
  6. METFORMIN [Concomitant]
     Active Substance: METFORMIN HYDROCHLORIDE
     Indication: Product used for unknown indication
     Dosage: 850 MG, BID
     Route: 065
     Dates: start: 202309
  7. ROSUVASTATIN [Concomitant]
     Active Substance: ROSUVASTATIN
     Indication: Product used for unknown indication
     Dosage: 10 MG, QD
     Route: 065
     Dates: start: 202403

REACTIONS (10)
  - Osteonecrosis of jaw [Unknown]
  - Blood glucose increased [Unknown]
  - Parathyroid tumour benign [Unknown]
  - Bile duct stone [Unknown]
  - Abdominal pain [Unknown]
  - Renal disorder [Unknown]
  - Hypercalcaemia [Unknown]
  - Blood bilirubin increased [Unknown]
  - Hyperlipidaemia [Unknown]
  - Carbohydrate antigen 15-3 increased [Unknown]

NARRATIVE: CASE EVENT DATE: 20200501
